FAERS Safety Report 9711910 (Version 2)
Quarter: 2013Q4

REPORT INFORMATION
  Report Type: Spontaneous
  Country: US (occurrence: US)
  Receive Date: 20131126
  Receipt Date: 20131126
  Transmission Date: 20140711
  Serious: No
  Sender: FDA-Public Use
  Company Number: US-BRISTOL-MYERS SQUIBB COMPANY-18831875

PATIENT
  Age: 62 Year
  Sex: Female
  Weight: 86.17 kg

DRUGS (12)
  1. BYDUREON [Suspect]
     Indication: TYPE 2 DIABETES MELLITUS
     Dosage: NO OF INJ:2?LAST INJ:23APR2013
     Route: 058
     Dates: start: 20130416
  2. ADVIL [Concomitant]
     Indication: PAIN
  3. QUINAPRIL HCL [Concomitant]
  4. MAXIDEX [Concomitant]
  5. METOPROLOL TARTRATE [Concomitant]
  6. SYNTHROID [Concomitant]
  7. JANUMET [Concomitant]
  8. AMITRIPTYLINE HCL [Concomitant]
  9. LORAZEPAM [Concomitant]
  10. DEXAMETHASONE [Concomitant]
  11. LEVOTHYROXINE SODIUM [Concomitant]
  12. SITAGLIPTIN PHOSPHATE + METFORMIN HCL [Concomitant]

REACTIONS (13)
  - Injection site haemorrhage [Unknown]
  - Injection site pain [Unknown]
  - Injection site bruising [Not Recovered/Not Resolved]
  - Injection site induration [Not Recovered/Not Resolved]
  - Injection site swelling [Unknown]
  - Injection site pruritus [Unknown]
  - Nausea [Not Recovered/Not Resolved]
  - Headache [Not Recovered/Not Resolved]
  - Injection site nodule [Not Recovered/Not Resolved]
  - Vomiting [Unknown]
  - Diarrhoea [Unknown]
  - Dyspepsia [Unknown]
  - Throat tightness [Unknown]
